FAERS Safety Report 4513081-1 (Version None)
Quarter: 2004Q4

REPORT INFORMATION
  Report Type: 
  Country: None (occurrence: None)
  Receive Date: 20040928
  Receipt Date: 20040702
  Transmission Date: 20050328
  Serious: No
  Sender: FDA-Public Use
  Company Number: 04P-163-0265416-00

PATIENT
  Age: 79 Year
  Sex: Female
  Weight: 60.3284 kg

DRUGS (10)
  1. HUMIRA [Suspect]
     Indication: RHEUMATOID ARTHRITIS
     Dosage: SEE IMAGE
     Route: 058
     Dates: start: 20030101, end: 20030101
  2. HUMIRA [Suspect]
     Indication: RHEUMATOID ARTHRITIS
     Dosage: SEE IMAGE
     Route: 058
     Dates: start: 20030101, end: 20040101
  3. HUMIRA [Suspect]
     Indication: RHEUMATOID ARTHRITIS
     Dosage: SEE IMAGE
     Route: 058
     Dates: start: 20040101, end: 20040101
  4. HUMIRA [Suspect]
     Indication: RHEUMATOID ARTHRITIS
     Dosage: SEE IMAGE
     Route: 058
     Dates: start: 20040101
  5. METHOTREXATE [Concomitant]
  6. ROFECOXIB [Concomitant]
  7. PREDNISONE [Concomitant]
  8. CELECOXIB [Concomitant]
  9. ATENOLOL [Concomitant]
  10. DIOVAN [Concomitant]

REACTIONS (5)
  - DRUG INEFFECTIVE [None]
  - INJECTION SITE PAIN [None]
  - PRURITUS GENERALISED [None]
  - RASH GENERALISED [None]
  - WEIGHT INCREASED [None]
